FAERS Safety Report 20749159 (Version 2)
Quarter: 2023Q1

REPORT INFORMATION
  Report Type: Spontaneous
  Country: US (occurrence: US)
  Receive Date: 20220426
  Receipt Date: 20230112
  Transmission Date: 20230418
  Serious: Yes (Other)
  Sender: FDA-Public Use
  Company Number: US-BRISTOL-MYERS SQUIBB COMPANY-2022-025295

PATIENT
  Age: 91 Year
  Sex: Female
  Weight: 57.1 kg

DRUGS (2)
  1. REVLIMID [Suspect]
     Active Substance: LENALIDOMIDE
     Indication: Plasma cell myeloma
     Dosage: EVERY OTHER DAY DAYS 1-21 EVERY 28 DAYS
     Route: 048
     Dates: start: 20200720, end: 20220419
  2. REVLIMID [Suspect]
     Active Substance: LENALIDOMIDE
     Dosage: 1 CAPSULE EVERY 48 HOURS, 3 WEEKS ON, ONE WEEK OFF
     Route: 048
     Dates: start: 20200722

REACTIONS (3)
  - Plasma cell myeloma [Unknown]
  - Fatigue [Recovered/Resolved]
  - Off label use [Unknown]
